FAERS Safety Report 19297940 (Version 1)
Quarter: 2021Q2

REPORT INFORMATION
  Report Type: Spontaneous
  Country: US (occurrence: US)
  Receive Date: 20210524
  Receipt Date: 20210524
  Transmission Date: 20210717
  Serious: No
  Sender: FDA-Public Use
  Company Number: US-GALDERMA-US2021009032

PATIENT
  Age: 12 Year
  Sex: Female

DRUGS (7)
  1. IBUPROFEN. [Concomitant]
     Active Substance: IBUPROFEN
     Indication: HEADACHE
  2. PROACTIV MD ADAPALENE ACNE TREATMENT [Suspect]
     Active Substance: ADAPALENE
     Indication: ACNE
     Dosage: 0.1%
     Route: 061
     Dates: start: 20210110, end: 20210315
  3. PROACTIV DEEP CLEANSING WASH [Concomitant]
     Active Substance: SALICYLIC ACID
     Indication: ACNE
     Route: 061
     Dates: start: 20210110, end: 20210315
  4. PROACTIV MD DEEP CLEANSING FACE WASH [Concomitant]
     Active Substance: COSMETICS
     Indication: ACNE
     Route: 061
     Dates: start: 20210110, end: 20210315
  5. ASPIRIN. [Concomitant]
     Active Substance: ASPIRIN
     Indication: HEADACHE
  6. PROACTIV MD DAILY OIL CONTROL SPF 30 [Suspect]
     Active Substance: AVOBENZONE\OCTISALATE\OCTOCRYLENE
     Indication: ACNE
     Route: 061
     Dates: start: 20210110, end: 20210315
  7. PROACTIV REDNESS RELIEF SERUM [Concomitant]
     Indication: ACNE
     Route: 061
     Dates: start: 20210110, end: 20210315

REACTIONS (2)
  - Drug ineffective [Unknown]
  - Erythema [Recovered/Resolved]

NARRATIVE: CASE EVENT DATE: 20210110
